FAERS Safety Report 26074707 (Version 2)
Quarter: 2025Q4

REPORT INFORMATION
  Report Type: Report from Study
  Country: US (occurrence: US)
  Receive Date: 20251121
  Receipt Date: 20251222
  Transmission Date: 20260118
  Serious: Yes (Death, Other)
  Sender: ALEXION PHARMACEUTICALS
  Company Number: US-ASTRAZENECA-202505NAM029726US

PATIENT
  Sex: Female

DRUGS (3)
  1. BENRALIZUMAB [Suspect]
     Active Substance: BENRALIZUMAB
     Indication: Asthma
     Dosage: 30 MG/ML, Q4W
  2. BENRALIZUMAB [Suspect]
     Active Substance: BENRALIZUMAB
  3. DUPIXENT [Concomitant]
     Active Substance: DUPILUMAB
     Route: 065

REACTIONS (1)
  - Death [Fatal]
